FAERS Safety Report 9804375 (Version 1)
Quarter: 2014Q1

REPORT INFORMATION
  Report Type: Spontaneous
  Country: US (occurrence: None)
  Receive Date: 20140106
  Receipt Date: 20140106
  Transmission Date: 20141002
  Serious: Yes (Hospitalization)
  Sender: FDA-Public Use
  Company Number: ABR_01370_2013

PATIENT
  Age: 72 Year
  Sex: Female
  Weight: 79.38 kg

DRUGS (5)
  1. EDARBI [Suspect]
     Indication: HYPERTENSION
     Route: 048
     Dates: start: 2010
  2. SIMVASTATIN (UNKNOWN) [Concomitant]
  3. HYDROCHLOROTHIAZID (UNKNOWN) [Concomitant]
  4. HYDRALIZINE (UNKNOWN) [Concomitant]
  5. AMLODIPINE (UNKNOWN) [Concomitant]

REACTIONS (5)
  - Drug dose omission [None]
  - Hypertension [None]
  - Anxiety [None]
  - Stress [None]
  - Malaise [None]
